FAERS Safety Report 23453716 (Version 3)
Quarter: 2024Q1

REPORT INFORMATION
  Report Type: Spontaneous
  Country: US (occurrence: US)
  Receive Date: 20240129
  Receipt Date: 20240319
  Transmission Date: 20240409
  Serious: No
  Sender: FDA-Public Use
  Company Number: US-SA-SAC20240123000226

PATIENT
  Age: 14 Year
  Sex: Male

DRUGS (5)
  1. DUPIXENT [Suspect]
     Active Substance: DUPILUMAB
     Indication: Dermatitis atopic
     Dosage: 600 MG, 1X
     Route: 058
     Dates: start: 20231223
  2. DUPIXENT [Suspect]
     Active Substance: DUPILUMAB
     Dosage: 300 MG, QOW
     Route: 058
     Dates: start: 2024
  3. PROTOPIC [Concomitant]
     Active Substance: TACROLIMUS
     Indication: Eczema
     Dosage: UNK
     Route: 065
  4. ARON [Concomitant]
     Dosage: UNK
     Route: 065
  5. BETAMETHASONE [Concomitant]
     Active Substance: BETAMETHASONE\BETAMETHASONE DIPROPIONATE
     Dosage: UNK

REACTIONS (10)
  - Feeling cold [Unknown]
  - Headache [Unknown]
  - Rhinitis allergic [Unknown]
  - Condition aggravated [Unknown]
  - Dry skin [Unknown]
  - Urticaria [Unknown]
  - Erythema [Unknown]
  - Condition aggravated [Unknown]
  - Conjunctivitis [Unknown]
  - Eczema [Unknown]
